FAERS Safety Report 23331121 (Version 1)
Quarter: 2023Q4

REPORT INFORMATION
  Report Type: Spontaneous
  Country: CA (occurrence: CA)
  Receive Date: 20231222
  Receipt Date: 20231222
  Transmission Date: 20240109
  Serious: Yes (Hospitalization)
  Sender: FDA-Public Use
  Company Number: CA-BAYER-2023A182730

PATIENT
  Age: 61 Year
  Sex: Male
  Weight: 77 kg

DRUGS (10)
  1. CIPRO [Suspect]
     Active Substance: CIPROFLOXACIN HYDROCHLORIDE
     Indication: Cystitis
     Dosage: 500 MG, BID
     Route: 048
  2. CALCIUM VITAMIN C [ASCORBIC ACID;CALCIUM CARBONATE] [Concomitant]
     Route: 048
  3. ACETAMINOPHEN [Concomitant]
     Active Substance: ACETAMINOPHEN
  4. ASCORBIC ACID [Concomitant]
     Active Substance: ASCORBIC ACID
  5. HYDROCORTISONE [Concomitant]
     Active Substance: HYDROCORTISONE
  6. MOMETASONE FUROATE [Concomitant]
     Active Substance: MOMETASONE FUROATE
  7. CLOBETASOL PROPIONATE [Concomitant]
     Active Substance: CLOBETASOL PROPIONATE
  8. DUTASTERIDE [Concomitant]
     Active Substance: DUTASTERIDE
     Route: 048
  9. POTASSIUM CHLORIDE [Concomitant]
     Active Substance: POTASSIUM CHLORIDE
  10. VALSARTAN [Concomitant]
     Active Substance: VALSARTAN

REACTIONS (4)
  - Acute kidney injury [Recovered/Resolved]
  - Pseudomembranous colitis [Recovered/Resolved]
  - Hypokalaemia [Recovered/Resolved]
  - Clostridium difficile colitis [Recovered/Resolved]
